FAERS Safety Report 11201274 (Version 1)
Quarter: 2015Q2

REPORT INFORMATION
  Report Type: Spontaneous
  Country: US (occurrence: US)
  Receive Date: 20150619
  Receipt Date: 20150619
  Transmission Date: 20150821
  Serious: No
  Sender: FDA-Public Use
  Company Number: US-BRISTOL-MYERS SQUIBB COMPANY-BMS-2015-038335

PATIENT
  Sex: Male

DRUGS (1)
  1. ELIQUIS [Suspect]
     Active Substance: APIXABAN
     Indication: PRODUCT USED FOR UNKNOWN INDICATION
     Dosage: 5 MG, BID
     Route: 048
     Dates: start: 201505

REACTIONS (7)
  - Vomiting [Unknown]
  - Abdominal distension [Unknown]
  - Gastric disorder [Unknown]
  - Nausea [Unknown]
  - Skin irritation [Unknown]
  - Eructation [Unknown]
  - Flatulence [Unknown]
